FAERS Safety Report 6028541-4 (Version None)
Quarter: 2008Q4

REPORT INFORMATION
  Report Type: 
  Country: None (occurrence: None)
  Receive Date: 20081222
  Receipt Date: 20081027
  Transmission Date: 20090506
  Serious: No
  Sender: FDA-Public Use
  Company Number: US-WYE-H06594808

PATIENT
  Age: 83 Year
  Sex: Female

DRUGS (12)
  1. PRISTIQ [Suspect]
     Indication: DEPRESSION
     Dosage: 50 MG 1X PER 1 DAY, ORAL
     Route: 048
     Dates: start: 20081005
  2. ALPRAZOLAM [Concomitant]
  3. AMLODIPINE [Concomitant]
  4. ZETIA [Concomitant]
  5. ENALAPRIL MALEATE [Concomitant]
  6. FLECAINIDE ACETATE [Concomitant]
  7. LIPITOR [Concomitant]
  8. TRICOR [Concomitant]
  9. ASPIRIN [Concomitant]
  10. DIGOXIN [Concomitant]
  11. COUMADIN [Concomitant]
  12. ZYPREXA [Concomitant]

REACTIONS (1)
  - VAGINAL HAEMORRHAGE [None]
